FAERS Safety Report 20732410 (Version 2)
Quarter: 2022Q2

REPORT INFORMATION
  Report Type: Report from Study
  Country: US (occurrence: US)
  Receive Date: 20220420
  Receipt Date: 20220426
  Transmission Date: 20220721
  Serious: Yes (Hospitalization)
  Sender: FDA-Public Use
  Company Number: US-PFIZER INC-202200550954

PATIENT
  Age: 79 Year
  Sex: Female
  Weight: 46.259 kg

DRUGS (1)
  1. SUTENT [Suspect]
     Active Substance: SUNITINIB MALATE
     Dosage: 50.0 MG/DAY
     Route: 048

REACTIONS (1)
  - Hyponatraemia [Recovered/Resolved]
